FAERS Safety Report 9095281 (Version 6)
Quarter: 2013Q3

REPORT INFORMATION
  Report Type: Spontaneous
  Country: NL (occurrence: None)
  Receive Date: 20130122
  Receipt Date: 20130725
  Transmission Date: 20140515
  Serious: Yes (Other)
  Sender: FDA-Public Use
  Company Number: US-2013-10021

PATIENT
  Age: 48 Year
  Sex: Male

DRUGS (5)
  1. OPC-41061 [Suspect]
     Indication: CONGENITAL CYSTIC KIDNEY DISEASE
     Route: 048
     Dates: start: 20110322, end: 20130111
  2. PANTOPRAZOL [Concomitant]
  3. PARACETAMOL (PARACETAMOL) [Concomitant]
  4. DICLOFENAC (DICLOFENAC DIETHYLAMINE) [Concomitant]
  5. FLUCLOXACILLIN (FLUCLOXACILLIN SODIUM) [Concomitant]

REACTIONS (3)
  - Deep vein thrombosis [None]
  - Therapy cessation [None]
  - Cellulitis [None]
